FAERS Safety Report 15363342 (Version 1)
Quarter: 2018Q3

REPORT INFORMATION
  Report Type: Spontaneous
  Country: CL (occurrence: CL)
  Receive Date: 20180907
  Receipt Date: 20180907
  Transmission Date: 20181010
  Serious: Yes (Other)
  Sender: FDA-Public Use
  Company Number: CL-009507513-1304CHL002210

PATIENT
  Age: 27 Year
  Sex: Female

DRUGS (6)
  1. NUVARING [Suspect]
     Active Substance: ETHINYL ESTRADIOL\ETONOGESTREL
     Dosage: DELIVERS 0.120 MILLIGRAM/ 0.015 MILLIGRAM PER DAY
     Route: 067
     Dates: start: 20130302, end: 20130315
  2. NUVARING [Suspect]
     Active Substance: ETHINYL ESTRADIOL\ETONOGESTREL
     Dosage: DELIVERS 0.120 MILLIGRAM/ 0.015 MILLIGRAM PER DAY
     Route: 067
     Dates: start: 20130316, end: 20140814
  3. NUVARING [Suspect]
     Active Substance: ETHINYL ESTRADIOL\ETONOGESTREL
     Indication: CONTRACEPTION
     Dosage: DELIVERS 0.120 MILLIGRAM/ 0.015 MILLIGRAM PER DAY QM
     Route: 067
     Dates: start: 20130104, end: 20130201
  4. NUVARING [Suspect]
     Active Substance: ETHINYL ESTRADIOL\ETONOGESTREL
     Indication: CHEMICAL CONTRACEPTION
     Dosage: DELIVERS 0.120 MILLIGRAM/ 0.015 MILLIGRAM PER DAYQM
     Route: 067
     Dates: start: 20130201, end: 20130302
  5. NUVARING [Suspect]
     Active Substance: ETHINYL ESTRADIOL\ETONOGESTREL
     Dosage: 1 DF, UNK
     Route: 067
     Dates: start: 20180830
  6. NUVARING [Suspect]
     Active Substance: ETHINYL ESTRADIOL\ETONOGESTREL
     Dosage: 1 DF, UNK
     Route: 067

REACTIONS (17)
  - Device breakage [Unknown]
  - Inappropriate schedule of drug administration [Unknown]
  - Inappropriate schedule of drug administration [Unknown]
  - Gardnerella infection [Unknown]
  - Vulvovaginal discomfort [Recovered/Resolved]
  - Device breakage [Unknown]
  - Inappropriate schedule of drug administration [Unknown]
  - Menstruation irregular [Unknown]
  - Device breakage [Unknown]
  - Incorrect drug administration duration [Unknown]
  - Incorrect drug administration duration [Unknown]
  - Vulvovaginal mycotic infection [Unknown]
  - Metrorrhagia [Recovered/Resolved]
  - Vulvovaginal discomfort [Unknown]
  - Device difficult to use [Unknown]
  - Inappropriate schedule of drug administration [Unknown]
  - Incorrect drug administration duration [Unknown]

NARRATIVE: CASE EVENT DATE: 2013
